FAERS Safety Report 7714654-5 (Version None)
Quarter: 2011Q3

REPORT INFORMATION
  Report Type: 
  Country: None (occurrence: None)
  Receive Date: 20110829
  Receipt Date: 20110819
  Transmission Date: 20111222
  Serious: Yes (Hospitalization)
  Sender: FDA-Public Use
  Company Number: FR-JNJFOC-20110810670

PATIENT
  Age: 17 Year
  Sex: Female

DRUGS (11)
  1. SOLU-MEDROL [Interacting]
     Route: 042
     Dates: start: 20110527
  2. ACETAMINOPHEN [Concomitant]
     Route: 065
  3. CREON [Concomitant]
     Route: 065
  4. FUROSEMIDE [Concomitant]
     Route: 065
  5. MEROPENEM [Concomitant]
     Route: 065
  6. COLISTIMETHATE SODIUM [Concomitant]
     Route: 065
  7. SOLU-MEDROL [Interacting]
     Indication: PRODUCT USED FOR UNKNOWN INDICATION
     Route: 042
  8. SPORANOX [Suspect]
     Indication: BRONCHOPULMONARY ASPERGILLOSIS
     Route: 048
     Dates: start: 20100101
  9. ALBUTEROL [Concomitant]
     Route: 065
  10. INSULIN [Concomitant]
     Route: 065
  11. ZITHROMAX [Concomitant]
     Route: 065

REACTIONS (3)
  - HYPERTENSION [None]
  - DRUG INTERACTION [None]
  - BRADYCARDIA [None]
